FAERS Safety Report 16959545 (Version 2)
Quarter: 2019Q4

REPORT INFORMATION
  Report Type: Spontaneous
  Country: RU (occurrence: RU)
  Receive Date: 20191025
  Receipt Date: 20191025
  Transmission Date: 20200122
  Serious: Yes (Life-Threatening)
  Sender: FDA-Public Use
  Company Number: RU-B.I. PHARMACEUTICALS,INC./RIDGEFIELD-2019-BI-109761

PATIENT
  Age: 86 Year
  Sex: Female

DRUGS (4)
  1. SPIRIVA [Suspect]
     Active Substance: TIOTROPIUM BROMIDE MONOHYDRATE
     Indication: ASTHMA
  2. BERODUAL [Concomitant]
     Active Substance: FENOTEROL HYDROBROMIDE\IPRATROPIUM BROMIDE
     Indication: CHRONIC OBSTRUCTIVE PULMONARY DISEASE
     Route: 055
  3. BERODUAL [Concomitant]
     Active Substance: FENOTEROL HYDROBROMIDE\IPRATROPIUM BROMIDE
     Indication: ASTHMA
  4. SPIRIVA [Suspect]
     Active Substance: TIOTROPIUM BROMIDE MONOHYDRATE
     Indication: CHRONIC OBSTRUCTIVE PULMONARY DISEASE
     Route: 055
     Dates: start: 20191020, end: 20191023

REACTIONS (1)
  - Dyspnoea [Recovered/Resolved]

NARRATIVE: CASE EVENT DATE: 20191023
